FAERS Safety Report 9918105 (Version 1)
Quarter: 2014Q1

REPORT INFORMATION
  Report Type: Spontaneous
  Country: US (occurrence: US)
  Receive Date: 20140223
  Receipt Date: 20140223
  Transmission Date: 20141002
  Serious: No
  Sender: FDA-Public Use
  Company Number: US-ALLERGAN-1301512US

PATIENT
  Sex: Male

DRUGS (1)
  1. TAZORAC CREAM 0.05% [Suspect]
     Indication: CANCER SURGERY
     Route: 061

REACTIONS (6)
  - Off label use [Unknown]
  - Scab [Unknown]
  - Skin infection [Unknown]
  - Rash erythematous [Unknown]
  - Erythema [Unknown]
  - Skin irritation [Unknown]
